FAERS Safety Report 9346297 (Version 2)
Quarter: 2013Q2

REPORT INFORMATION
  Report Type: Spontaneous
  Country: US (occurrence: US)
  Receive Date: 20130613
  Receipt Date: 20130628
  Transmission Date: 20140414
  Serious: Yes (Other)
  Sender: FDA-Public Use
  Company Number: US-BAYER-2013-071591

PATIENT
  Age: 51 Year
  Sex: Male
  Weight: 78 kg

DRUGS (13)
  1. STIVARGA [Suspect]
     Indication: COLON CANCER METASTATIC
     Dosage: UNK
     Dates: start: 201305, end: 201306
  2. ASPIRIN [Concomitant]
     Dosage: 81 MG, QD
     Route: 048
  3. ATORVASTATIN [Concomitant]
     Dosage: 10 MG, QD
     Route: 048
  4. CITALOPRAM [Concomitant]
     Indication: DEPRESSION
     Dosage: 40 MG, QD
     Route: 048
  5. DIOVAN [Concomitant]
     Dosage: 160 MG, QD
     Route: 048
  6. FERROUS SULFATE [Concomitant]
     Indication: IRON DEFICIENCY ANAEMIA
     Dosage: 1 DF, TID
     Route: 048
  7. GABAPENTIN [Concomitant]
     Dosage: 900 MG, TID
     Route: 048
  8. PANTOPRAZOLE [Concomitant]
     Dosage: 40 MG, QD
     Route: 048
  9. PLAVIX [Concomitant]
     Dosage: 75 MG, QD
     Route: 048
  10. PROMETHAZINE [Concomitant]
     Indication: NAUSEA
     Route: 048
  11. VITAMIN B12 [Concomitant]
     Dosage: 1000 ?G, QD
     Route: 048
  12. VITAMIN C [Concomitant]
  13. ZOFRAN [Concomitant]
     Indication: NAUSEA

REACTIONS (3)
  - Haematuria [Recovered/Resolved]
  - Pain [None]
  - Metastases to abdominal cavity [None]
